FAERS Safety Report 13770339 (Version 4)
Quarter: 2018Q2

REPORT INFORMATION
  Report Type: Report from Study
  Country: None (occurrence: DE)
  Receive Date: 20170719
  Receipt Date: 20180531
  Transmission Date: 20180711
  Serious: Yes (Disabling)
  Sender: FDA-Public Use
  Company Number: DE-ABBVIE-17P-062-2040990-00

PATIENT
  Age: 13 Year
  Sex: Male
  Weight: 37 kg

DRUGS (18)
  1. MESALAZIN-SALOFALK [Concomitant]
     Route: 048
     Dates: start: 20160511, end: 20160629
  2. ACETYLSALICYLSAURE [Concomitant]
     Active Substance: ASPIRIN
     Route: 048
     Dates: start: 20170628
  3. METHOTREXATE. [Suspect]
     Active Substance: METHOTREXATE
     Indication: CROHN^S DISEASE
     Dosage: THERAPY CHANGE
     Route: 048
     Dates: start: 20160312, end: 20160316
  4. METHOTREXATE. [Suspect]
     Active Substance: METHOTREXATE
     Dosage: EVERY WEEK FRIDAY
     Route: 065
     Dates: start: 20160405
  5. ACETYLSALICYLSAURE [Concomitant]
     Active Substance: ASPIRIN
     Indication: CROHN^S DISEASE
     Route: 048
     Dates: start: 20160630, end: 20160808
  6. FOLIC ACID. [Concomitant]
     Active Substance: FOLIC ACID
     Indication: CROHN^S DISEASE
     Route: 048
     Dates: start: 20160630
  7. PREDNISOLON [Concomitant]
     Active Substance: PREDNISOLONE
     Indication: CROHN^S DISEASE
     Route: 048
     Dates: start: 201703, end: 20170402
  8. MESALAZIN-SALOFALK [Concomitant]
     Route: 048
     Dates: start: 20160630
  9. ONDANSETRON [Concomitant]
     Active Substance: ONDANSETRON
     Indication: CROHN^S DISEASE
     Route: 048
     Dates: start: 2017
  10. HUMIRA [Suspect]
     Active Substance: ADALIMUMAB
     Indication: CROHN^S DISEASE
     Route: 058
     Dates: start: 201506, end: 20160510
  11. HUMIRA [Suspect]
     Active Substance: ADALIMUMAB
     Dosage: TWICE A WEEK TUESDAY AND SATURDAY
     Route: 058
     Dates: start: 20160514, end: 20160617
  12. OMEPRAZOL [Concomitant]
     Active Substance: OMEPRAZOLE
     Route: 048
     Dates: start: 2016, end: 201704
  13. MESALAZIN-SALOFALK [Concomitant]
     Indication: CROHN^S DISEASE
     Route: 048
     Dates: start: 20120416, end: 20160510
  14. PREDNISOLON [Concomitant]
     Active Substance: PREDNISOLONE
     Route: 048
     Dates: start: 20170402, end: 20170406
  15. VEDOLIZUMAB [Concomitant]
     Active Substance: VEDOLIZUMAB
     Indication: CROHN^S DISEASE
     Route: 042
     Dates: start: 20160618
  16. VEDOLIZUMAB [Concomitant]
     Active Substance: VEDOLIZUMAB
     Route: 042
     Dates: start: 20170406, end: 20170406
  17. OMEPRAZOL [Concomitant]
     Active Substance: OMEPRAZOLE
     Indication: CROHN^S DISEASE
     Route: 048
     Dates: start: 20160320, end: 20160629
  18. VITAMIN D [Concomitant]
     Active Substance: CHOLECALCIFEROL
     Indication: PROPHYLAXIS
     Dosage: 20000 IE
     Route: 048
     Dates: start: 2016

REACTIONS (1)
  - Pathological fracture [Not Recovered/Not Resolved]

NARRATIVE: CASE EVENT DATE: 20170406
